FAERS Safety Report 23043988 (Version 1)
Quarter: 2023Q4

REPORT INFORMATION
  Report Type: Spontaneous
  Country: US (occurrence: US)
  Receive Date: 20231009
  Receipt Date: 20231009
  Transmission Date: 20240109
  Serious: No
  Sender: FDA-Public Use
  Company Number: US-JNJFOC-20230967182

PATIENT
  Age: 61 Year
  Sex: Male

DRUGS (26)
  1. TREMFYA [Suspect]
     Active Substance: GUSELKUMAB
     Indication: Autoimmune thyroiditis
     Route: 058
     Dates: start: 20180718
  2. TREMFYA [Suspect]
     Active Substance: GUSELKUMAB
  3. AMLODIPINE [Concomitant]
     Active Substance: AMLODIPINE BESYLATE
  4. CLOBETASOL [Concomitant]
     Active Substance: CLOBETASOL
  5. CONTOUR [ESOMEPRAZOLE MAGNESIUM] [Concomitant]
  6. DOXEPIN [Concomitant]
     Active Substance: DOXEPIN
  7. FARXIGA [Concomitant]
     Active Substance: DAPAGLIFLOZIN PROPANEDIOL
  8. FIASP [Concomitant]
     Active Substance: INSULIN ASPART
  9. FLUCONAZOLE [Concomitant]
     Active Substance: FLUCONAZOLE
  10. FLUTICASONE [Concomitant]
     Active Substance: FLUTICASONE
  11. IPRATROPIUM [Concomitant]
     Active Substance: IPRATROPIUM
  12. LEVOTHYROXINE [Concomitant]
     Active Substance: LEVOTHYROXINE
  13. HYDROCHLOROTHIAZIDE\LOSARTAN POTASSIUM [Concomitant]
     Active Substance: HYDROCHLOROTHIAZIDE\LOSARTAN POTASSIUM
  14. METFORMIN [Concomitant]
     Active Substance: METFORMIN HYDROCHLORIDE
  15. MODAFINIL [Concomitant]
     Active Substance: MODAFINIL
  16. NYSTOP [Concomitant]
     Active Substance: NYSTATIN
  17. OMEPRAZOLE [Concomitant]
     Active Substance: OMEPRAZOLE
  18. OXYCODONE [Concomitant]
     Active Substance: OXYCODONE
  19. SIMVASTATIN [Concomitant]
     Active Substance: SIMVASTATIN
  20. SYMPROIC [Concomitant]
     Active Substance: NALDEMEDINE
  21. TAMSULOSIN [Concomitant]
     Active Substance: TAMSULOSIN
  22. TESTOSTERONE [Concomitant]
     Active Substance: TESTOSTERONE
  23. TRESIBA [Concomitant]
     Active Substance: INSULIN DEGLUDEC
  24. TRIAMCINOLONE [Concomitant]
     Active Substance: TRIAMCINOLONE
  25. TRULICITY [Concomitant]
     Active Substance: DULAGLUTIDE
  26. ZOLPIDEM [Concomitant]
     Active Substance: ZOLPIDEM TARTRATE

REACTIONS (3)
  - Drug ineffective [Unknown]
  - Product dose omission issue [Unknown]
  - Off label use [Unknown]
